FAERS Safety Report 19579887 (Version 1)
Quarter: 2021Q3

REPORT INFORMATION
  Report Type: Spontaneous
  Country: DE (occurrence: DE)
  Receive Date: 20210719
  Receipt Date: 20210719
  Transmission Date: 20211014
  Serious: Yes (Hospitalization, Other)
  Sender: FDA-Public Use
  Company Number: DE-INCYTE CORPORATION-2021IN006254

PATIENT

DRUGS (2)
  1. JAKAVI [Suspect]
     Active Substance: RUXOLITINIB
     Indication: PRIMARY MYELOFIBROSIS
     Dosage: 30 MG, QD (2 X15 MG) (JAKAVI 15 MG)
     Route: 048
     Dates: start: 20200907, end: 20210329
  2. JAKAVI [Suspect]
     Active Substance: RUXOLITINIB
     Dosage: 20 MG, QD (2X10 MG) (JAKAVI 10 MG)
     Route: 048
     Dates: start: 20210401, end: 20210510

REACTIONS (1)
  - Lymph node tuberculosis [Not Recovered/Not Resolved]

NARRATIVE: CASE EVENT DATE: 202105
